FAERS Safety Report 7897990-1 (Version None)
Quarter: 2011Q4

REPORT INFORMATION
  Report Type: 
  Country: None (occurrence: None)
  Receive Date: 20111107
  Receipt Date: 20111107
  Transmission Date: 20120403
  Serious: Yes (Hospitalization)
  Sender: FDA-Public Use
  Company Number: None

PATIENT
  Age: 74 Year
  Sex: Male
  Weight: 107 kg

DRUGS (1)
  1. PRADAXA [Suspect]
     Indication: ATRIAL FIBRILLATION
     Dates: start: 20111101, end: 20111103

REACTIONS (5)
  - FAECES DISCOLOURED [None]
  - PULMONARY MASS [None]
  - CHEST X-RAY ABNORMAL [None]
  - PLEURAL EFFUSION [None]
  - ABDOMINAL DISCOMFORT [None]
